FAERS Safety Report 11701772 (Version 1)
Quarter: 2015Q4

REPORT INFORMATION
  Report Type: Spontaneous
  Country: US (occurrence: US)
  Receive Date: 20151105
  Receipt Date: 20151105
  Transmission Date: 20160304
  Serious: No
  Sender: FDA-Public Use
  Company Number: US-MALLINCKRODT-T201503502

PATIENT
  Sex: Female
  Weight: 65 kg

DRUGS (10)
  1. AMITREX [Concomitant]
     Indication: MIGRAINE
  2. SINGULAIR [Concomitant]
     Active Substance: MONTELUKAST SODIUM
  3. WELLBUTRIN [Concomitant]
     Active Substance: BUPROPION HYDROCHLORIDE
  4. FENTANYL TRANSDERMAL SYSTEM [Suspect]
     Active Substance: FENTANYL
     Indication: PAIN
     Dosage: 100 MCG/HR Q72H
     Route: 062
  5. BACLOFEN. [Concomitant]
     Active Substance: BACLOFEN
     Dosage: 10 MG TID
  6. CLARITIN [Concomitant]
     Active Substance: LORATADINE
     Indication: SINUS DISORDER
  7. CLONAZEPAM. [Concomitant]
     Active Substance: CLONAZEPAM
     Dosage: 0.5 MG BID
  8. CYMBALTA [Concomitant]
     Active Substance: DULOXETINE HYDROCHLORIDE
     Dosage: 30 MG QD
  9. MELOXICAM. [Concomitant]
     Active Substance: MELOXICAM
     Indication: ARTHRITIS
  10. HYDROCODONE BITARTRATE AND ACETAMINOPHEN [Concomitant]
     Active Substance: ACETAMINOPHEN\HYDROCODONE BITARTRATE
     Indication: BREAKTHROUGH PAIN
     Dosage: 7.5 MG/325 MG ,PRN

REACTIONS (3)
  - Product adhesion issue [Unknown]
  - Drug effect decreased [Not Recovered/Not Resolved]
  - Drug effect delayed [Not Recovered/Not Resolved]

NARRATIVE: CASE EVENT DATE: 2013
